FAERS Safety Report 6043083-8 (Version None)
Quarter: 2009Q1

REPORT INFORMATION
  Report Type: 
  Country: None (occurrence: None)
  Receive Date: 20090119
  Receipt Date: 20090108
  Transmission Date: 20090719
  Serious: Yes (Hospitalization)
  Sender: FDA-Public Use
  Company Number: IT-PFIZER INC-2008076772

PATIENT
  Sex: Female
  Weight: 54 kg

DRUGS (3)
  1. SUNITINIB MALATE [Suspect]
     Indication: BREAST CANCER
     Dosage: 37.5 MG, 2 WEEK ON THERAPY/1 WEEK REST
     Route: 048
     Dates: start: 20080508, end: 20080902
  2. DOCETAXEL [Suspect]
     Indication: BREAST CANCER
     Dosage: 120 MG, EVERY 3 WEEKS
     Route: 042
     Dates: start: 20080507, end: 20080819
  3. ENALAPRIL MALEATE [Concomitant]
     Dates: start: 20060401

REACTIONS (3)
  - CONJUNCTIVITIS [None]
  - FATIGUE [None]
  - GENERAL PHYSICAL HEALTH DETERIORATION [None]
